FAERS Safety Report 20146151 (Version 5)
Quarter: 2022Q1

REPORT INFORMATION
  Report Type: Report from Study
  Country: JP (occurrence: JP)
  Receive Date: 20211203
  Receipt Date: 20220214
  Transmission Date: 20220424
  Serious: Yes (Hospitalization)
  Sender: FDA-Public Use
  Company Number: JP-PFIZER INC-202101656490

PATIENT
  Age: 19 Year
  Sex: Female
  Weight: 75 kg

DRUGS (6)
  1. SOMATROPIN [Suspect]
     Active Substance: SOMATROPIN
     Indication: Prader-Willi syndrome
     Dosage: 0.45 MG, 6 TIMES IN A WEEK
     Route: 058
     Dates: start: 20210511, end: 20210610
  2. SOMATROPIN [Suspect]
     Active Substance: SOMATROPIN
     Dosage: 1.05 MG, 6 TIMES IN A WEEK
     Route: 058
     Dates: start: 20210611, end: 20211101
  3. SOMATROPIN [Suspect]
     Active Substance: SOMATROPIN
     Dosage: 1.2 MG, 6 TIMES IN A WEEK
     Route: 058
     Dates: start: 20211102, end: 20211123
  4. GENTAMICIN SULFATE [Concomitant]
     Active Substance: GENTAMICIN SULFATE
     Indication: Skin abrasion
     Dosage: UNK
     Dates: start: 20210817
  5. ZINC OXIDE [Concomitant]
     Active Substance: ZINC OXIDE
     Indication: Skin abrasion
     Dosage: UNK
     Dates: start: 20210817
  6. RINDERON VG [Concomitant]
     Active Substance: BETAMETHASONE VALERATE\GENTAMICIN SULFATE
     Indication: Skin abrasion
     Dosage: UNK
     Dates: start: 20210719, end: 20211123

REACTIONS (1)
  - Hypertension [Recovering/Resolving]

NARRATIVE: CASE EVENT DATE: 20211123
